FAERS Safety Report 13661759 (Version 1)
Quarter: 2017Q2

REPORT INFORMATION
  Report Type: Spontaneous
  Country: US (occurrence: US)
  Receive Date: 20170616
  Receipt Date: 20170616
  Transmission Date: 20170830
  Serious: Yes (Other)
  Sender: FDA-Public Use
  Company Number: US-ELI_LILLY_AND_COMPANY-US201706003571

PATIENT
  Sex: Male
  Weight: 82 kg

DRUGS (4)
  1. PLAVIX [Suspect]
     Active Substance: CLOPIDOGREL BISULFATE
     Indication: PRODUCT USED FOR UNKNOWN INDICATION
     Dosage: UNK, UNKNOWN
     Route: 065
  2. ASPIRIN                            /00002701/ [Concomitant]
     Active Substance: ASPIRIN
     Indication: PRODUCT USED FOR UNKNOWN INDICATION
  3. EFFIENT [Suspect]
     Active Substance: PRASUGREL HYDROCHLORIDE
     Indication: STENT PLACEMENT
     Dosage: 10 MG, DAILY
     Route: 048
     Dates: start: 2016
  4. ATORVASTATIN [Suspect]
     Active Substance: ATORVASTATIN
     Indication: PRODUCT USED FOR UNKNOWN INDICATION
     Dosage: 5 MG, 3/W
     Route: 065

REACTIONS (12)
  - Myalgia [Not Recovered/Not Resolved]
  - Dizziness [Unknown]
  - Tremor [Not Recovered/Not Resolved]
  - Nervousness [Not Recovered/Not Resolved]
  - Change of bowel habit [Unknown]
  - Genital pain [Recovered/Resolved]
  - Muscle spasms [Recovered/Resolved]
  - Muscular weakness [Unknown]
  - Angina pectoris [Unknown]
  - Pollakiuria [Not Recovered/Not Resolved]
  - Memory impairment [Not Recovered/Not Resolved]
  - Urinary tract disorder [Unknown]

NARRATIVE: CASE EVENT DATE: 2016
